FAERS Safety Report 11742245 (Version 1)
Quarter: 2015Q4

REPORT INFORMATION
  Report Type: Spontaneous
  Country: US (occurrence: US)
  Receive Date: 20151116
  Receipt Date: 20151116
  Transmission Date: 20160304
  Serious: No
  Sender: FDA-Public Use
  Company Number: US-ACTELION PHARMACEUTICALS US, INC.-A-NJ2015-114713

PATIENT
  Age: 68 Year
  Sex: Female

DRUGS (11)
  1. BUMETANIDE. [Concomitant]
     Active Substance: BUMETANIDE
  2. XOPENEX HFA [Concomitant]
     Active Substance: LEVALBUTEROL TARTRATE
  3. ALPRAZOLAM. [Concomitant]
     Active Substance: ALPRAZOLAM
  4. CLARITIN [Concomitant]
     Active Substance: LORATADINE
  5. TRACLEER [Suspect]
     Active Substance: BOSENTAN
     Indication: PULMONARY ARTERIAL HYPERTENSION
     Dosage: UNK
     Route: 048
  6. DIGOXIN. [Concomitant]
     Active Substance: DIGOXIN
  7. REMODULIN [Concomitant]
     Active Substance: TREPROSTINIL
  8. WARFARIN [Concomitant]
     Active Substance: WARFARIN
  9. SYMBICORT [Concomitant]
     Active Substance: BUDESONIDE\FORMOTEROL FUMARATE DIHYDRATE
  10. KLOR-CON [Concomitant]
     Active Substance: POTASSIUM CHLORIDE
  11. MTV [Concomitant]

REACTIONS (3)
  - Upper-airway cough syndrome [Not Recovered/Not Resolved]
  - Pharyngitis [Not Recovered/Not Resolved]
  - Nasal congestion [Unknown]
